FAERS Safety Report 7637151-4 (Version None)
Quarter: 2011Q3

REPORT INFORMATION
  Report Type: 
  Country: None (occurrence: None)
  Receive Date: 20110726
  Receipt Date: 20110714
  Transmission Date: 20111222
  Serious: Yes (Hospitalization)
  Sender: FDA-Public Use
  Company Number: US-PFIZER INC-2011147734

PATIENT
  Age: 72 Year
  Sex: Female
  Weight: 80 kg

DRUGS (3)
  1. PACLITAXEL [Suspect]
     Indication: ENDOMETRIAL CANCER
     Dosage: 175 MG/M2 IV OVER 3 HRS ON DAY 1X6 CYCLES
     Route: 042
     Dates: start: 20110217, end: 20110520
  2. TEMSIROLIMUS [Suspect]
     Indication: ENDOMETRIAL CANCER METASTATIC
     Dosage: 25MG DAYS 1 + 8 STARTING CYCLE 2
     Route: 042
     Dates: start: 20110217, end: 20110527
  3. CARBOPLATIN [Suspect]
     Indication: ENDOMETRIAL CANCER
     Dosage: AUC=5 IV OVER 30 MINUTES ON DAY 1X6 CYCLES
     Route: 042
     Dates: start: 20110217, end: 20110520

REACTIONS (1)
  - JOINT EFFUSION [None]
